FAERS Safety Report 23022049 (Version 1)
Quarter: 2023Q4

REPORT INFORMATION
  Report Type: Spontaneous
  Country: US (occurrence: US)
  Receive Date: 20231003
  Receipt Date: 20231003
  Transmission Date: 20240110
  Serious: Yes (Hospitalization)
  Sender: FDA-Public Use
  Company Number: US-BEXIMCO-2023BEX00054

PATIENT
  Age: 84 Year
  Sex: Female

DRUGS (1)
  1. BACLOFEN [Suspect]
     Active Substance: BACLOFEN
     Indication: Neck pain
     Dosage: 20 MG, 2X/DAY

REACTIONS (3)
  - Encephalopathy [Recovering/Resolving]
  - Respiratory acidosis [Recovered/Resolved]
  - Toxicity to various agents [Recovering/Resolving]
